FAERS Safety Report 16944391 (Version 2)
Quarter: 2020Q4

REPORT INFORMATION
  Report Type: Spontaneous
  Country: US (occurrence: US)
  Receive Date: 20191022
  Receipt Date: 20201215
  Transmission Date: 20210113
  Serious: No
  Sender: FDA-Public Use
  Company Number: US-BIOGEN-2019BI00798489

PATIENT
  Sex: Female

DRUGS (1)
  1. TECFIDERA [Suspect]
     Active Substance: DIMETHYL FUMARATE
     Indication: MULTIPLE SCLEROSIS
     Route: 065

REACTIONS (6)
  - Dehydration [Unknown]
  - Flushing [Unknown]
  - Abdominal discomfort [Unknown]
  - Chemical burn [Unknown]
  - Body temperature increased [Unknown]
  - Gastrointestinal disorder [Unknown]
